FAERS Safety Report 12783972 (Version 1)
Quarter: 2016Q3

REPORT INFORMATION
  Report Type: Spontaneous
  Country: CN (occurrence: CN)
  Receive Date: 20160927
  Receipt Date: 20160927
  Transmission Date: 20161109
  Serious: Yes (Other)
  Sender: FDA-Public Use
  Company Number: CN-NOVOPROD-510934

PATIENT
  Age: 31 Year
  Sex: Male
  Weight: 47 kg

DRUGS (2)
  1. NOVOMIX 30 PENFILL [Suspect]
     Active Substance: INSULIN ASPART
     Indication: TYPE 2 DIABETES MELLITUS
     Dosage: 33 U, QD (16U-3U-14U BEFORE THREE MEALS)
     Route: 058
     Dates: start: 20160503
  2. NOVOMIX 30 PENFILL [Suspect]
     Active Substance: INSULIN ASPART
     Dosage: 42 IU, QD (32U-10U BEFORE BREAKFAST AND BEFORE SUPPER)
     Route: 058
     Dates: start: 20160514, end: 20160514

REACTIONS (7)
  - Injection site pruritus [Recovered/Resolved]
  - Injection site swelling [Recovered/Resolved]
  - Nausea [Recovered/Resolved]
  - Diabetes mellitus inadequate control [Unknown]
  - Injection site pain [Recovered/Resolved]
  - Pruritus [Recovered/Resolved]
  - Drug hypersensitivity [Unknown]

NARRATIVE: CASE EVENT DATE: 20160514
